FAERS Safety Report 8971196 (Version 4)
Quarter: 2013Q2

REPORT INFORMATION
  Report Type: Spontaneous
  Country: CA (occurrence: CA)
  Receive Date: 20121217
  Receipt Date: 20130612
  Transmission Date: 20140414
  Serious: Yes (Hospitalization)
  Sender: FDA-Public Use
  Company Number: CA-GLAXOSMITHKLINE-A1004975A

PATIENT
  Age: 59 Year
  Sex: Female
  Weight: 70.9 kg

DRUGS (10)
  1. CANADIAN SEASONAL INFLUENZA VACCINE UNSPECIFIED 2012-13 SEASON [Suspect]
     Indication: PROPHYLAXIS
     Route: 065
     Dates: start: 20121213, end: 20121213
  2. ADVAIR [Suspect]
     Indication: CHRONIC OBSTRUCTIVE PULMONARY DISEASE
     Dosage: 1PUFF TWICE PER DAY
     Route: 055
     Dates: start: 201102
  3. SPIRIVA [Concomitant]
  4. OXYGEN [Concomitant]
  5. VENTOLIN [Concomitant]
     Dosage: 2PUFF AS REQUIRED
  6. ZANTAC [Concomitant]
  7. ATASOL [Concomitant]
  8. MUSCLE RELAXANT [Concomitant]
  9. PAIN KILLER [Concomitant]
  10. ERYTHROMYCIN [Concomitant]

REACTIONS (7)
  - Loss of consciousness [Recovered/Resolved]
  - Pneumothorax [Unknown]
  - Hypopnoea [Unknown]
  - Influenza [Recovering/Resolving]
  - Nausea [Recovering/Resolving]
  - Abdominal discomfort [Recovering/Resolving]
  - Vaccination failure [Unknown]
